FAERS Safety Report 7036328-9 (Version None)
Quarter: 2010Q4

REPORT INFORMATION
  Report Type: 
  Country: None (occurrence: None)
  Receive Date: 20101008
  Receipt Date: 20100930
  Transmission Date: 20110411
  Serious: Yes (Death, Hospitalization, Other)
  Sender: FDA-Public Use
  Company Number: US-AMGEN-KDL442960

PATIENT
  Sex: Male
  Weight: 78.1 kg

DRUGS (26)
  1. PROCRIT [Suspect]
     Indication: ANAEMIA
     Route: 058
     Dates: start: 20090616
  2. PROCRIT [Suspect]
     Route: 058
  3. ASPIRIN [Concomitant]
     Route: 048
  4. NITROGLYCERIN [Concomitant]
     Route: 048
  5. JANUVIA [Concomitant]
     Route: 048
  6. HUMALOG [Concomitant]
     Route: 058
  7. AMARYL [Concomitant]
     Route: 048
  8. ZOLPIDEM [Concomitant]
  9. ATROPINE [Concomitant]
  10. REGLAN [Concomitant]
     Route: 048
  11. COLCHICINE [Concomitant]
     Route: 048
  12. ALLOPURINOL [Concomitant]
     Route: 048
  13. MECLIZINE [Concomitant]
  14. ESOMEPRAZOLE [Concomitant]
     Route: 048
  15. MIRALAX [Concomitant]
     Route: 048
  16. CENTRUM [Concomitant]
     Route: 048
  17. HYDRALAZINE HYDROCHLORIDE [Concomitant]
     Route: 048
  18. NEBIVOLOL [Concomitant]
     Route: 048
  19. PROZAC [Concomitant]
     Route: 048
  20. METOLAZONE [Concomitant]
     Route: 048
  21. FERROUS SULFATE [Concomitant]
     Route: 048
  22. FUROSEMIDE [Concomitant]
     Route: 048
  23. POTASSIUM CHLORIDE [Concomitant]
     Route: 048
  24. ALBUTEROL [Concomitant]
     Route: 048
  25. SALINE MIXTURE [Concomitant]
  26. ADVAIR DISKUS 100/50 [Concomitant]

REACTIONS (4)
  - CARDIAC FAILURE CONGESTIVE [None]
  - DIARRHOEA [None]
  - OEDEMA PERIPHERAL [None]
  - RENAL FAILURE ACUTE [None]
